FAERS Safety Report 4715223-1 (Version None)
Quarter: 2005Q3

REPORT INFORMATION
  Report Type: 
  Country: None (occurrence: None)
  Receive Date: 20050715
  Receipt Date: 20050705
  Transmission Date: 20060218
  Serious: Yes (Other)
  Sender: FDA-Public Use
  Company Number: FR-ROCHE-409733

PATIENT
  Age: 86 Year
  Sex: Male

DRUGS (6)
  1. LOXEN LP [Suspect]
     Indication: HYPERTENSION
     Route: 048
     Dates: start: 19970925
  2. TAHOR [Suspect]
     Indication: HYPERLIPIDAEMIA
     Route: 048
     Dates: start: 20010316, end: 20050504
  3. LASIX [Suspect]
     Indication: HYPERTENSION
     Route: 048
     Dates: start: 19970925, end: 20050503
  4. SOTALEX [Suspect]
     Indication: HYPERTENSION
     Route: 048
     Dates: start: 20010915
  5. ENDOTELON [Suspect]
     Indication: CARDIOVASCULAR DISORDER
     Route: 048
     Dates: start: 20000913, end: 20050503
  6. FOZITEC [Suspect]
     Indication: HYPERTENSION
     Route: 048
     Dates: start: 19970925, end: 20050503

REACTIONS (17)
  - ALANINE AMINOTRANSFERASE INCREASED [None]
  - ASPARTATE AMINOTRANSFERASE INCREASED [None]
  - BLOOD ALKALINE PHOSPHATASE INCREASED [None]
  - C-REACTIVE PROTEIN INCREASED [None]
  - CEREBROVASCULAR ACCIDENT [None]
  - ECZEMA [None]
  - GAMMA-GLUTAMYLTRANSFERASE INCREASED [None]
  - HAEMATOCRIT DECREASED [None]
  - HAEMOGLOBIN DECREASED [None]
  - HYPOALBUMINAEMIA [None]
  - LEUKOCYTOCLASTIC VASCULITIS [None]
  - LEUKOCYTOSIS [None]
  - PYREXIA [None]
  - RED BLOOD CELL COUNT DECREASED [None]
  - RENAL FAILURE [None]
  - THROMBOCYTOPENIA [None]
  - TOXIC SKIN ERUPTION [None]
